FAERS Safety Report 20661481 (Version 1)
Quarter: 2022Q2

REPORT INFORMATION
  Report Type: Spontaneous
  Country: SE (occurrence: SE)
  Receive Date: 20220401
  Receipt Date: 20220401
  Transmission Date: 20220721
  Serious: Yes (Other)
  Sender: FDA-Public Use
  Company Number: SE-MPA-2021-077526

PATIENT
  Sex: Male

DRUGS (1)
  1. METOPROLOL [Suspect]
     Active Substance: METOPROLOL
     Indication: Essential hypertension
     Dosage: UNK
     Route: 065

REACTIONS (2)
  - Altered state of consciousness [Unknown]
  - Fatigue [Unknown]
